FAERS Safety Report 15051447 (Version 3)
Quarter: 2020Q3

REPORT INFORMATION
  Report Type: Spontaneous
  Country: CA (occurrence: CA)
  Receive Date: 20180622
  Receipt Date: 20200914
  Transmission Date: 20201102
  Serious: Yes (Other)
  Sender: FDA-Public Use
  Company Number: CA-PFIZER INC-2018248501

PATIENT
  Age: 54 Year
  Sex: Female

DRUGS (5)
  1. STELARA [Concomitant]
     Active Substance: USTEKINUMAB
     Dosage: UNK, EVERY 12 WEEK
     Dates: start: 201711, end: 201806
  2. METHOTREXATE SODIUM. [Suspect]
     Active Substance: METHOTREXATE SODIUM
     Dosage: UNK
     Dates: start: 201505, end: 201806
  3. OTEZLA [Concomitant]
     Active Substance: APREMILAST
     Dosage: UNK
     Dates: start: 201703, end: 201708
  4. HUMIRA [Concomitant]
     Active Substance: ADALIMUMAB
     Dosage: UNK
     Dates: start: 201512, end: 201703
  5. METHOTREXATE SODIUM. [Suspect]
     Active Substance: METHOTREXATE SODIUM
     Dosage: UNK
     Dates: start: 2014

REACTIONS (3)
  - Drug intolerance [Unknown]
  - Hepatotoxicity [Unknown]
  - Hepatitis [Unknown]
